FAERS Safety Report 18123234 (Version 4)
Quarter: 2020Q3

REPORT INFORMATION
  Report Type: Spontaneous
  Country: US (occurrence: US)
  Receive Date: 20200807
  Receipt Date: 20200915
  Transmission Date: 20201103
  Serious: Yes (Death)
  Sender: FDA-Public Use
  Company Number: US-ROCHE-2652560

PATIENT

DRUGS (2)
  1. ACTIVASE [Suspect]
     Active Substance: ALTEPLASE
     Indication: PULMONARY EMBOLISM
     Dosage: TWO 50 MG BOLUS DOSES ADMINISTERED 10?15 MIN APART ;ONGOING: NO
     Route: 040
     Dates: start: 20200727, end: 20200727
  2. ACTIVASE [Suspect]
     Active Substance: ALTEPLASE
     Indication: CARDIAC ARREST

REACTIONS (3)
  - Off label use [Fatal]
  - Death [Fatal]
  - Product complaint [Unknown]

NARRATIVE: CASE EVENT DATE: 20200727
